FAERS Safety Report 19766518 (Version 1)
Quarter: 2021Q3

REPORT INFORMATION
  Report Type: Spontaneous
  Country: GB (occurrence: GB)
  Receive Date: 20210830
  Receipt Date: 20210830
  Transmission Date: 20211014
  Serious: Yes (Other)
  Sender: FDA-Public Use
  Company Number: GB-MYLANLABS-2021M1057371

PATIENT
  Age: 16 Year
  Sex: Male

DRUGS (14)
  1. CLOZAPINE. [Interacting]
     Active Substance: CLOZAPINE
     Dosage: 950 MILLIGRAM, QD
     Route: 065
  2. PALIPERIDONE. [Concomitant]
     Active Substance: PALIPERIDONE
     Indication: SCHIZOAFFECTIVE DISORDER
     Dosage: UNK
     Route: 065
  3. RISPERIDONE. [Suspect]
     Active Substance: RISPERIDONE
     Indication: SCHIZOAFFECTIVE DISORDER
     Dosage: UNK, QD (UP TO 4 MG DAILY)
     Route: 065
  4. FLUVOXAMINE [Interacting]
     Active Substance: FLUVOXAMINE
     Indication: EVIDENCE BASED TREATMENT
     Dosage: 25 MILLIGRAM, QD
     Route: 065
  5. OLANZAPINE. [Suspect]
     Active Substance: OLANZAPINE
     Indication: SCHIZOAFFECTIVE DISORDER
     Dosage: UNK
     Route: 065
  6. CLOZAPINE. [Interacting]
     Active Substance: CLOZAPINE
     Dosage: 850 MILLIGRAM, QD
     Route: 065
  7. FLUVOXAMINE [Interacting]
     Active Substance: FLUVOXAMINE
     Indication: SCHIZOAFFECTIVE DISORDER
  8. HALOPERIDOL. [Concomitant]
     Active Substance: HALOPERIDOL
     Indication: SCHIZOAFFECTIVE DISORDER
     Dosage: UNK
     Route: 065
  9. CLOZAPINE. [Interacting]
     Active Substance: CLOZAPINE
     Indication: SCHIZOAFFECTIVE DISORDER
     Dosage: UNK
     Route: 065
  10. LITHIUM. [Concomitant]
     Active Substance: LITHIUM
     Dosage: 1200 MILLIGRAM, QD
     Route: 065
  11. CLOZAPINE. [Interacting]
     Active Substance: CLOZAPINE
     Dosage: 500 MILLIGRAM, QD
     Route: 065
  12. LITHIUM. [Concomitant]
     Active Substance: LITHIUM
     Indication: SCHIZOAFFECTIVE DISORDER
     Dosage: UNK
     Route: 065
  13. CLOZAPINE. [Interacting]
     Active Substance: CLOZAPINE
     Dosage: UNK, QD (UP TO A DOSE OF 850MG)
     Route: 065
  14. LURASIDONE [Concomitant]
     Active Substance: LURASIDONE
     Indication: SCHIZOAFFECTIVE DISORDER
     Dosage: UNK
     Route: 065

REACTIONS (4)
  - Weight increased [Unknown]
  - Labelled drug-drug interaction medication error [Unknown]
  - Therapy non-responder [Unknown]
  - Antipsychotic drug level increased [Unknown]
